FAERS Safety Report 11785322 (Version 3)
Quarter: 2015Q4

REPORT INFORMATION
  Report Type: Spontaneous
  Country: CN (occurrence: CN)
  Receive Date: 20151130
  Receipt Date: 20151214
  Transmission Date: 20160305
  Serious: Yes (Other)
  Sender: FDA-Public Use
  Company Number: CN-ASTELLAS-2015US044148

PATIENT
  Age: 63 Year
  Sex: Female

DRUGS (1)
  1. TARCEVA [Suspect]
     Active Substance: ERLOTINIB HYDROCHLORIDE
     Indication: LUNG CANCER METASTATIC
     Route: 048
     Dates: start: 201511

REACTIONS (7)
  - Nasal mucosal disorder [Not Recovered/Not Resolved]
  - Apathy [Recovering/Resolving]
  - Rash [Not Recovered/Not Resolved]
  - Appetite disorder [Recovering/Resolving]
  - Interstitial lung disease [Recovering/Resolving]
  - Mouth ulceration [Recovered/Resolved]
  - Wheezing [Recovering/Resolving]

NARRATIVE: CASE EVENT DATE: 201511
